FAERS Safety Report 4791279-5 (Version None)
Quarter: 2005Q4

REPORT INFORMATION
  Report Type: 
  Country: None (occurrence: None)
  Receive Date: 20051007
  Receipt Date: 20050309
  Transmission Date: 20060501
  Serious: Yes (Life-Threatening, Hospitalization)
  Sender: FDA-Public Use
  Company Number: 2005UW03798

PATIENT
  Age: 753 Month
  Sex: Female

DRUGS (20)
  1. CRESTOR [Suspect]
     Indication: BLOOD CHOLESTEROL
     Route: 048
     Dates: start: 20040212
  2. CRESTOR [Suspect]
     Indication: HYPERLIPIDAEMIA
     Route: 048
     Dates: start: 20040212
  3. TALIDOMIDA [Suspect]
     Indication: MULTIPLE MYELOMA
  4. SPIRONOLACTONE [Concomitant]
  5. TIAZAC [Concomitant]
  6. TRAMADOL HCL [Concomitant]
  7. HYDROCHLOROTHIAZIDE [Concomitant]
  8. CLONIDINE HCL [Concomitant]
  9. PREMARIN [Concomitant]
  10. TAZTIA XT [Concomitant]
  11. PREVACID [Concomitant]
  12. FLONASE [Concomitant]
  13. NORVASC [Concomitant]
  14. POTASSIUM CL [Concomitant]
  15. FUROSEMIDE [Concomitant]
  16. PROCRIT [Concomitant]
  17. MULTI-RET FOLIC [Concomitant]
  18. ZINC GLUCONATE [Concomitant]
  19. CIPRO XR [Concomitant]
  20. AUDIA [Concomitant]

REACTIONS (10)
  - ANAEMIA [None]
  - BLOOD GLUCOSE INCREASED [None]
  - HAEMATOCRIT DECREASED [None]
  - HAEMOGLOBIN DECREASED [None]
  - HYPOCALCAEMIA [None]
  - HYPOKALAEMIA [None]
  - HYPOMAGNESAEMIA [None]
  - RENAL FAILURE ACUTE [None]
  - RENAL TUBULAR NECROSIS [None]
  - RHABDOMYOLYSIS [None]
